FAERS Safety Report 14117319 (Version 1)
Quarter: 2017Q4

REPORT INFORMATION
  Report Type: Report from Study
  Country: US (occurrence: US)
  Receive Date: 20171023
  Receipt Date: 20171023
  Transmission Date: 20180321
  Serious: Yes (Other)
  Sender: FDA-Public Use
  Company Number: US-UCBSA-2017042386

PATIENT
  Sex: Female

DRUGS (1)
  1. BRIVARACETAM [Suspect]
     Active Substance: BRIVARACETAM
     Indication: SEIZURE
     Dosage: 100 MG, 2X/DAY (BID); STRENGTH: 100 MG

REACTIONS (4)
  - Swollen tongue [Recovered/Resolved]
  - Swelling face [Recovered/Resolved]
  - Dysphagia [Recovered/Resolved]
  - Lip swelling [Recovered/Resolved]
